FAERS Safety Report 9552266 (Version 3)
Quarter: 2013Q4

REPORT INFORMATION
  Report Type: Spontaneous
  Country: US (occurrence: US)
  Receive Date: 20130925
  Receipt Date: 20131220
  Transmission Date: 20140711
  Serious: Yes (Hospitalization)
  Sender: FDA-Public Use
  Company Number: US-BIOGENIDEC-2013BI081773

PATIENT
  Age: 75 Year
  Sex: Female

DRUGS (12)
  1. TECFIDERA [Suspect]
     Indication: MULTIPLE SCLEROSIS
     Route: 048
     Dates: start: 201306, end: 201306
  2. TECFIDERA [Suspect]
     Indication: MULTIPLE SCLEROSIS
     Route: 048
     Dates: start: 201306, end: 20130829
  3. TIZANIDINE [Concomitant]
     Route: 048
  4. SYNTHROID [Concomitant]
     Route: 048
  5. NEURONTIN [Concomitant]
     Route: 048
  6. CLONAZEPAM [Concomitant]
     Route: 048
  7. CITALOPRAM [Concomitant]
     Route: 048
  8. CALCIUM WITH VITAMIN D [Concomitant]
     Route: 048
  9. DULCOLAX [Concomitant]
     Route: 054
  10. BISACODYL [Concomitant]
     Route: 048
  11. ATELVIA [Concomitant]
     Route: 048
  12. ASPIRIN [Concomitant]
     Route: 048

REACTIONS (2)
  - Neuromyelitis optica [Not Recovered/Not Resolved]
  - Device related infection [Not Recovered/Not Resolved]
